FAERS Safety Report 26007347 (Version 1)
Quarter: 2025Q4

REPORT INFORMATION
  Report Type: Spontaneous
  Country: US (occurrence: US)
  Receive Date: 20251106
  Receipt Date: 20251106
  Transmission Date: 20260117
  Serious: No
  Sender: INSUD PHARMA
  Company Number: US-INSUD PHARMA-2510US08779

PATIENT

DRUGS (1)
  1. SLYND [Suspect]
     Active Substance: DROSPIRENONE
     Indication: Product used for unknown indication
     Dosage: UNK
     Route: 048

REACTIONS (9)
  - Anxiety [Unknown]
  - Nausea [Unknown]
  - Hyperhidrosis [Unknown]
  - Tremor [Unknown]
  - Feeding disorder [Unknown]
  - Restlessness [Unknown]
  - Insomnia [Unknown]
  - Heart rate increased [Unknown]
  - Abnormal loss of weight [Unknown]
